FAERS Safety Report 23175791 (Version 1)
Quarter: 2023Q4

REPORT INFORMATION
  Report Type: Spontaneous
  Country: PL (occurrence: PL)
  Receive Date: 20231113
  Receipt Date: 20231113
  Transmission Date: 20240110
  Serious: Yes (Hospitalization, Other)
  Sender: FDA-Public Use
  Company Number: PL-JNJFOC-20231073427

PATIENT
  Age: 56 Year
  Sex: Male

DRUGS (3)
  1. SILDENAFIL [Suspect]
     Active Substance: SILDENAFIL
     Indication: Pulmonary arterial hypertension
     Dosage: UNK
     Route: 065
  2. OPSUMIT [Suspect]
     Active Substance: MACITENTAN
     Indication: Pulmonary arterial hypertension
     Dosage: UNK
     Route: 048
  3. VELETRI [Suspect]
     Active Substance: EPOPROSTENOL
     Indication: Pulmonary arterial hypertension
     Dosage: 12.2 NANOGRAM PER KILOGRAM, 1 MINUTE
     Route: 042

REACTIONS (6)
  - Hospitalisation [Unknown]
  - Pulmonary congestion [Unknown]
  - Headache [Recovered/Resolved]
  - Fluid retention [Unknown]
  - Oxygen saturation decreased [Unknown]
  - Nausea [Recovered/Resolved]
